FAERS Safety Report 4888599-2 (Version None)
Quarter: 2005Q4

REPORT INFORMATION
  Report Type: 
  Country: None (occurrence: None)
  Receive Date: 20051216
  Receipt Date: 20050912
  Transmission Date: 20060501
  Serious: No
  Sender: FDA-Public Use
  Company Number: USA0508105997

PATIENT
  Age: 45 Year
  Sex: Male

DRUGS (6)
  1. CIALIS [Suspect]
     Indication: ERECTILE DYSFUNCTION
     Dosage: 20 MG
  2. DIOVAN [Concomitant]
  3. HYDROCODONE BITARTRATE [Concomitant]
  4. ALPRAZOLAM [Concomitant]
  5. IBUPROFEN [Concomitant]
  6. . [Concomitant]

REACTIONS (1)
  - DRUG INEFFECTIVE [None]
